FAERS Safety Report 4901892-X (Version None)
Quarter: 2006Q1

REPORT INFORMATION
  Report Type: 
  Country: None (occurrence: None)
  Receive Date: 20060202
  Receipt Date: 20060202
  Transmission Date: 20060701
  Serious: Yes (Other)
  Sender: FDA-Public Use
  Company Number: None

PATIENT
  Sex: Female
  Weight: 58.9676 kg

DRUGS (2)
  1. LEVOTHROID [Suspect]
     Indication: HYPOTHYROIDISM
     Dosage: .1MG 1 PER DAY 7,8 OF 05
  2. SYNTHROID [Suspect]
     Indication: HYPOTHYROIDISM
     Dosage: .1MG 1 PER DAY  11,12, OF 05

REACTIONS (1)
  - ANXIETY [None]
